FAERS Safety Report 20017901 (Version 2)
Quarter: 2022Q4

REPORT INFORMATION
  Report Type: Spontaneous
  Country: PK (occurrence: PK)
  Receive Date: 20211101
  Receipt Date: 20221107
  Transmission Date: 20230113
  Serious: Yes (Other)
  Sender: FDA-Public Use
  Company Number: PK-PFIZER INC-2021847726

PATIENT
  Age: 17 Year
  Sex: Male

DRUGS (4)
  1. ENBREL [Suspect]
     Active Substance: ETANERCEPT
     Indication: Juvenile idiopathic arthritis
     Dosage: 50 MG, WEEKLY
     Route: 058
     Dates: start: 20210706
  2. DEPO-MEDROL [Concomitant]
     Active Substance: METHYLPREDNISOLONE ACETATE
     Dosage: 120 MG
  3. MO TU [Concomitant]
     Dosage: 7.5 MG, 1X/DAY
  4. CONTOUR [ESOMEPRAZOLE MAGNESIUM] [Concomitant]
     Dosage: 40 MG, 1X/DAY

REACTIONS (3)
  - Eosinophilia myalgia syndrome [Unknown]
  - Vitamin D decreased [Unknown]
  - Pain [Unknown]
